FAERS Safety Report 19913109 (Version 1)
Quarter: 2021Q4

REPORT INFORMATION
  Report Type: Report from Study
  Country: CO (occurrence: CO)
  Receive Date: 20211004
  Receipt Date: 20211004
  Transmission Date: 20220303
  Serious: Yes (Hospitalization)
  Sender: FDA-Public Use
  Company Number: CO-NOVARTISPH-PHHY2018CO048976

PATIENT
  Age: 70 Year
  Sex: Female
  Weight: 48 kg

DRUGS (4)
  1. SANDOSTATIN LAR DEPOT [Suspect]
     Active Substance: OCTREOTIDE ACETATE
     Indication: Acromegaly
     Dosage: 20 MG, QMO (ONCE A MONTH)
     Route: 030
     Dates: start: 20170819
  2. SANDOSTATIN LAR DEPOT [Suspect]
     Active Substance: OCTREOTIDE ACETATE
     Dosage: 20 MG, QMO (ONCE A MONTH)
     Route: 030
     Dates: start: 201710
  3. SANDOSTATIN LAR DEPOT [Suspect]
     Active Substance: OCTREOTIDE ACETATE
     Dosage: 30 MG, QMO
     Route: 030
  4. SANDOSTATIN LAR DEPOT [Suspect]
     Active Substance: OCTREOTIDE ACETATE
     Dosage: UNK
     Route: 030

REACTIONS (12)
  - COVID-19 [Not Recovered/Not Resolved]
  - Feeling abnormal [Unknown]
  - Depression [Unknown]
  - Hypoaesthesia [Unknown]
  - Visual impairment [Unknown]
  - Anxiety [Unknown]
  - Fear [Unknown]
  - Vertigo [Unknown]
  - Dizziness [Not Recovered/Not Resolved]
  - Headache [Unknown]
  - Illness [Unknown]
  - Discouragement [Unknown]

NARRATIVE: CASE EVENT DATE: 20171103
